FAERS Safety Report 8547815-6 (Version None)
Quarter: 2012Q3

REPORT INFORMATION
  Report Type: 
  Country: None (occurrence: None)
  Receive Date: 20120727
  Receipt Date: 20120209
  Transmission Date: 20120928
  Serious: Yes (Hospitalization, Other)
  Sender: FDA-Public Use
  Company Number: US-ASTRAZENECA-2012SE08833

PATIENT
  Age: 23 Year
  Sex: Female
  Weight: 41.7 kg

DRUGS (2)
  1. SEROQUEL XR [Suspect]
     Indication: MENTAL DISORDER
     Route: 048
     Dates: end: 20120113
  2. PRISTIQ [Suspect]
     Indication: DEPRESSION
     Route: 065
     Dates: start: 20111201, end: 20120113

REACTIONS (1)
  - CONVULSION [None]
